FAERS Safety Report 4686092-3 (Version None)
Quarter: 2005Q2

REPORT INFORMATION
  Report Type: 
  Country: None (occurrence: None)
  Receive Date: 20050609
  Receipt Date: 20050602
  Transmission Date: 20051028
  Serious: Yes (Death, Other)
  Sender: FDA-Public Use
  Company Number: 200515217GDDC

PATIENT
  Age: 66 Year
  Sex: Female

DRUGS (6)
  1. LASIX [Suspect]
     Indication: SWELLING
     Dates: start: 19960801
  2. TARGOCID [Suspect]
     Dosage: DOSE: UNK
  3. CORDARONE [Suspect]
     Indication: ARRHYTHMIA
     Route: 042
     Dates: start: 19960901, end: 19960904
  4. SANDOSTATIN [Suspect]
     Dosage: DOSE: UNK
  5. GENTAMICIN [Suspect]
     Dosage: DOSE: UNK
  6. ZANTAC [Suspect]
     Route: 048
     Dates: start: 19960904

REACTIONS (2)
  - DEATH [None]
  - RASH PSORIAFORM [None]
